FAERS Safety Report 12282346 (Version 3)
Quarter: 2016Q2

REPORT INFORMATION
  Report Type: Spontaneous
  Country: US (occurrence: US)
  Receive Date: 20160419
  Receipt Date: 20160608
  Transmission Date: 20160815
  Serious: Yes (Other)
  Sender: FDA-Public Use
  Company Number: US-MDT-ADR-2016-00707

PATIENT
  Age: 73 Year
  Sex: Male

DRUGS (1)
  1. LIORESAL [Suspect]
     Active Substance: BACLOFEN
     Dosage: 100 MCG/ML
     Route: 037

REACTIONS (2)
  - No therapeutic response [Recovered/Resolved]
  - Muscle spasticity [Recovered/Resolved]
